FAERS Safety Report 4903555-3 (Version None)
Quarter: 2006Q1

REPORT INFORMATION
  Report Type: 
  Country: None (occurrence: None)
  Receive Date: 20060208
  Receipt Date: 20051129
  Transmission Date: 20060701
  Serious: Yes (Hospitalization)
  Sender: FDA-Public Use
  Company Number: AT-BRISTOL-MYERS SQUIBB COMPANY-13198023

PATIENT
  Age: 71 Year
  Sex: Male

DRUGS (2)
  1. IRINOTECAN HCL [Suspect]
     Indication: COLORECTAL CANCER METASTATIC
     Dosage: INITIATED ON 05-APR-2005. END OF STUDY 09-NOV-2005.
     Route: 042
     Dates: start: 20051102, end: 20051102
  2. CETUXIMAB [Suspect]
     Dosage: ADMINISTERED OUT OF STUDY.
     Route: 042
     Dates: start: 20051121, end: 20051121

REACTIONS (1)
  - CYTOKINE RELEASE SYNDROME [None]
